FAERS Safety Report 12715929 (Version 1)
Quarter: 2016Q3

REPORT INFORMATION
  Report Type: Spontaneous
  Country: US (occurrence: US)
  Receive Date: 20160906
  Receipt Date: 20160906
  Transmission Date: 20161109
  Serious: No
  Sender: FDA-Public Use
  Company Number: US-BAYER-2016-164996

PATIENT
  Age: 78 Year
  Sex: Female
  Weight: 68.27 kg

DRUGS (3)
  1. BAYER LOW DOSE [Suspect]
     Active Substance: ASPIRIN
     Indication: CEREBROVASCULAR ACCIDENT PROPHYLAXIS
  2. NORVASC [Concomitant]
     Active Substance: AMLODIPINE BESYLATE
  3. ALEVE [Suspect]
     Active Substance: NAPROXEN SODIUM
     Indication: ARTHRITIS
     Dosage: 2 DF, QD
     Route: 048
     Dates: start: 2016

REACTIONS (12)
  - Malaise [Not Recovered/Not Resolved]
  - Asthenia [Not Recovered/Not Resolved]
  - Swelling [None]
  - Wrong technique in product usage process [None]
  - Drug effect incomplete [None]
  - Product use issue [None]
  - Product use issue [None]
  - Nausea [Not Recovered/Not Resolved]
  - Urticaria [None]
  - Pruritus [None]
  - Dizziness [Not Recovered/Not Resolved]
  - Dysphagia [None]

NARRATIVE: CASE EVENT DATE: 2016
